FAERS Safety Report 8995776 (Version 1)
Quarter: 2013Q1

REPORT INFORMATION
  Report Type: Spontaneous
  Country: US (occurrence: US)
  Receive Date: 20130103
  Receipt Date: 20130103
  Transmission Date: 20140127
  Serious: No
  Sender: FDA-Public Use
  Company Number: US-ABBOTT-12P-163-0898180-00

PATIENT
  Age: 64 None
  Sex: Female
  Weight: 86.26 kg

DRUGS (4)
  1. SYNTHROID [Suspect]
     Indication: THYROIDECTOMY
     Dates: start: 1992
  2. SYNTHROID [Suspect]
     Indication: HYPOTHYROIDISM
     Dates: start: 1992, end: 201112
  3. SYNTHROID [Suspect]
     Indication: THYROIDECTOMY
     Dates: start: 201112
  4. SYNTHROID [Suspect]
     Indication: HYPOTHYROIDISM

REACTIONS (12)
  - Alopecia [Not Recovered/Not Resolved]
  - Diarrhoea [Not Recovered/Not Resolved]
  - Sneezing [Not Recovered/Not Resolved]
  - Feeling abnormal [Unknown]
  - Thyroid function test abnormal [Unknown]
  - Coeliac disease [Unknown]
  - Drug intolerance [Unknown]
  - Breath odour [Unknown]
  - Abdominal distension [Unknown]
  - Somnolence [Unknown]
  - Dysphonia [Unknown]
  - Drug dose omission [Unknown]
